FAERS Safety Report 17078255 (Version 1)
Quarter: 2019Q4

REPORT INFORMATION
  Report Type: Report from Study
  Country: ES (occurrence: ES)
  Receive Date: 20191126
  Receipt Date: 20191126
  Transmission Date: 20200122
  Serious: No
  Sender: FDA-Public Use
  Company Number: ES-BEH-2019109153

PATIENT
  Age: 37 Year
  Sex: Female

DRUGS (4)
  1. BERINERT [Suspect]
     Active Substance: HUMAN C1-ESTERASE INHIBITOR
     Indication: HEREDITARY ANGIOEDEMA
     Dosage: 1000 INTERNATIONAL UNIT, EVERY 2-5 DAYS
     Route: 042
     Dates: start: 20131216, end: 20140704
  2. BERINERT [Suspect]
     Active Substance: HUMAN C1-ESTERASE INHIBITOR
     Indication: PROPHYLAXIS
  3. BERINERT [Suspect]
     Active Substance: HUMAN C1-ESTERASE INHIBITOR
     Indication: HEREDITARY ANGIOEDEMA
     Dosage: 1000 INTERNATIONAL UNIT, EVERY 2-5 DAYS
     Route: 042
     Dates: start: 20131216, end: 20140704
  4. BERINERT [Suspect]
     Active Substance: HUMAN C1-ESTERASE INHIBITOR
     Indication: PROPHYLAXIS

REACTIONS (2)
  - Product use in unapproved indication [Unknown]
  - No adverse event [Unknown]
